FAERS Safety Report 9196926 (Version 2)
Quarter: 2013Q3

REPORT INFORMATION
  Report Type: Spontaneous
  Country: US (occurrence: None)
  Receive Date: 20120709
  Receipt Date: 20130724
  Transmission Date: 20140515
  Serious: Yes (Other)
  Sender: FDA-Public Use
  Company Number: PHEH2012US002149

PATIENT
  Sex: Female

DRUGS (1)
  1. GLEEVEC [Suspect]
     Indication: CHRONIC MYELOID LEUKAEMIA

REACTIONS (10)
  - Haematochezia [None]
  - Faeces discoloured [None]
  - Diarrhoea [None]
  - Small intestinal haemorrhage [None]
  - Nightmare [None]
  - Dizziness postural [None]
  - Fatigue [None]
  - Insomnia [None]
  - Weight decreased [None]
  - Decreased appetite [None]
